FAERS Safety Report 8392152-6 (Version None)
Quarter: 2012Q2

REPORT INFORMATION
  Report Type: 
  Country: None (occurrence: None)
  Receive Date: 20120502
  Receipt Date: 20120502
  Transmission Date: 20120825
  Serious: Yes (Other)
  Sender: FDA-Public Use
  Company Number: None

PATIENT
  Age: 37 Year
  Sex: Female

DRUGS (1)
  1. PRIMAPORE DRESSING 4^ X 3+1/8^ OR DRESSING CHANGE KIT WITH CHLORHEXIDI [Suspect]
     Dosage: TOPICAL
     Route: 061

REACTIONS (2)
  - APPLICATION SITE RASH [None]
  - PRURITUS [None]
